FAERS Safety Report 22653324 (Version 1)
Quarter: 2023Q2

REPORT INFORMATION
  Report Type: Report from Study
  Country: EG (occurrence: EG)
  Receive Date: 20230629
  Receipt Date: 20230629
  Transmission Date: 20230722
  Serious: Yes (Other)
  Sender: FDA-Public Use
  Company Number: EG-002147023-NVSC2023EG145265

PATIENT
  Age: 8 Year
  Sex: Male

DRUGS (4)
  1. OMNITROPE [Suspect]
     Active Substance: SOMATROPIN
     Indication: Growth hormone deficiency
     Dosage: 1.3 MG, QD
     Route: 058
     Dates: start: 201906
  2. OMNITROPE [Suspect]
     Active Substance: SOMATROPIN
     Dosage: 1.5 MG, QD
     Route: 058
     Dates: end: 202302
  3. VIDROP [Concomitant]
     Indication: Vitamin supplementation
     Dosage: 1 DRP, QD (1 FILLED DROPPER /DAY)
     Route: 048
     Dates: end: 202302
  4. ZINC [Concomitant]
     Active Substance: ZINC
     Indication: Vitamin supplementation
     Dosage: UNK, QD (5 CM/DAY)
     Route: 048
     Dates: end: 202302

REACTIONS (12)
  - Disturbance in attention [Recovered/Resolved]
  - Insomnia [Recovered/Resolved]
  - Injection site bruising [Recovered/Resolved]
  - Injection site swelling [Recovered/Resolved]
  - Injection site haemorrhage [Recovered/Resolved]
  - Product availability issue [Recovered/Resolved]
  - Underdose [Recovered/Resolved]
  - Expired device used [Recovered/Resolved]
  - Product preparation error [Recovered/Resolved]
  - Multiple use of single-use product [Recovered/Resolved]
  - Wrong device used [Recovered/Resolved]
  - Drug ineffective [Not Recovered/Not Resolved]

NARRATIVE: CASE EVENT DATE: 20190601
